FAERS Safety Report 7481065-X (Version None)
Quarter: 2011Q2

REPORT INFORMATION
  Report Type: 
  Country: None (occurrence: None)
  Receive Date: 20110512
  Receipt Date: 20110512
  Transmission Date: 20111010
  Serious: Yes (Other)
  Sender: FDA-Public Use
  Company Number: None

PATIENT
  Sex: Female
  Weight: 67.1324 kg

DRUGS (4)
  1. VAGIFEM [Suspect]
     Indication: MYALGIA
     Dosage: INSERT AT NIGHT ONE AT NIGHT
     Dates: start: 20110330
  2. VAGIFEM [Suspect]
     Indication: BACK PAIN
     Dosage: INSERT AT NIGHT ONE AT NIGHT
     Dates: start: 20110330
  3. VAGIFEM [Suspect]
     Indication: MYALGIA
     Dosage: INSERT AT NIGHT ONE AT NIGHT
     Dates: start: 20110406
  4. VAGIFEM [Suspect]
     Indication: BACK PAIN
     Dosage: INSERT AT NIGHT ONE AT NIGHT
     Dates: start: 20110406

REACTIONS (3)
  - BACK PAIN [None]
  - MYALGIA [None]
  - DIARRHOEA [None]
